FAERS Safety Report 21257187 (Version 2)
Quarter: 2023Q2

REPORT INFORMATION
  Report Type: Report from Study
  Country: AT (occurrence: AT)
  Receive Date: 20220826
  Receipt Date: 20230414
  Transmission Date: 20230722
  Serious: Yes (Other)
  Sender: FDA-Public Use
  Company Number: AT-EMA-DD-20220810-225465-133428

PATIENT
  Age: 49 Year
  Sex: Female
  Weight: 55 kg

DRUGS (14)
  1. EXEMESTANE [Suspect]
     Active Substance: EXEMESTANE
     Indication: Breast cancer
     Dosage: 25 MILLIGRAM DAILY; 25 MG (FREQUENCY: O.D. - ONCE DAILY)
     Dates: start: 20181108
  2. EXEMESTANE [Suspect]
     Active Substance: EXEMESTANE
     Indication: HER2 positive breast cancer
     Route: 065
  3. PACLITAXEL [Suspect]
     Active Substance: PACLITAXEL
     Indication: Breast cancer
     Dosage: 199 MG (WEEKLY; MOST RECENT DOSE WAS RECEIVED ON 15/MAY/2019)
     Dates: start: 20181205, end: 20190515
  4. PACLITAXEL [Suspect]
     Active Substance: PACLITAXEL
     Indication: HER2 positive breast cancer
     Dosage: 199 MG WEEKLY (MOST RECENT DOSE WAS RECEIVED ON 15/MAY/2019)
     Dates: start: 20181215
  5. TRASTUZUMAB [Suspect]
     Active Substance: TRASTUZUMAB
     Indication: HER2 positive breast cancer
     Dosage: 330 MG EVERY 4 WEEKS (MOST RECENT DOSE PRIOR TO THE EVENT: 13/NOV/2018), TRASTUZUMAB (UNKNOWN)
     Dates: start: 20190918
  6. TRASTUZUMAB [Suspect]
     Active Substance: TRASTUZUMAB
     Indication: Breast cancer
     Dosage: 330 MG EVERY 3 WEEKS (MOST RECENT DOSE PRIOR TO THE EVENT: 13/NOV/2018), DURATION : 310 DAYS
     Dates: start: 20181113, end: 20190918
  7. PERTUZUMAB [Suspect]
     Active Substance: PERTUZUMAB
     Indication: Breast cancer
     Dosage: 420 MG EVERY 4 WEEKS (MOST RECENT DOSE PRIOR TO THE EVENT: 13/NOV/2018)
     Dates: start: 20190918
  8. PERTUZUMAB [Suspect]
     Active Substance: PERTUZUMAB
     Indication: HER2 positive breast cancer
     Dosage: 420 MG EVERY 3 WEEKS (MOST RECENT DOSE PRIOR TO THE EVENT: 13/NOV/2018), DURATION : 310 DAYS
     Dates: start: 20181113, end: 20190918
  9. DENOSUMAB [Suspect]
     Active Substance: DENOSUMAB
     Indication: HER2 positive breast cancer
     Dosage: 120 MG EVERY 4 WEEKS
     Dates: start: 20190104
  10. PACLITAXEL [Suspect]
     Active Substance: PACLITAXEL
     Indication: HER2 positive breast cancer
     Dosage: 199 MG; WEEKLY
     Dates: start: 20181205, end: 20190515
  11. PREGABALIN [Concomitant]
     Active Substance: PREGABALIN
     Indication: Product used for unknown indication
     Dosage: ONGOING = CHECKED
  12. DIAZEPAM [Concomitant]
     Active Substance: DIAZEPAM
     Indication: Product used for unknown indication
     Dosage: ONGOING = CHECKED
     Dates: start: 20181108
  13. OLEOVIT [Concomitant]
     Indication: Product used for unknown indication
     Dosage: ONGOING = CHECKED
     Dates: start: 20181108
  14. PANTOPRAZOLE [Concomitant]
     Active Substance: PANTOPRAZOLE
     Indication: Product used for unknown indication
     Dosage: ONGOING = CHECKED
     Dates: start: 20181108

REACTIONS (4)
  - Arthralgia [Recovered/Resolved]
  - Stomatitis [Recovered/Resolved]
  - Polyneuropathy [Recovered/Resolved]
  - Off label use [Unknown]

NARRATIVE: CASE EVENT DATE: 20181207
